FAERS Safety Report 9502100 (Version 1)
Quarter: 2013Q3

REPORT INFORMATION
  Report Type: Report from Study
  Country: CN (occurrence: CN)
  Receive Date: 20130905
  Receipt Date: 20130905
  Transmission Date: 20140515
  Serious: Yes (Other)
  Sender: FDA-Public Use
  Company Number: CN-US-EMD SERONO, INC.-7229035

PATIENT
  Sex: Female
  Weight: 18 kg

DRUGS (1)
  1. SAIZEN [Suspect]
     Indication: PRODUCT USED FOR UNKNOWN INDICATION
     Dosage: SAIZEN DAILY INJECTION VOLUME 1

REACTIONS (3)
  - Optic atrophy [Unknown]
  - Drug ineffective [Unknown]
  - Wrong technique in drug usage process [Unknown]
